FAERS Safety Report 11102405 (Version 1)
Quarter: 2015Q2

REPORT INFORMATION
  Report Type: Report from Study
  Country: US (occurrence: US)
  Receive Date: 20150511
  Receipt Date: 20150511
  Transmission Date: 20150821
  Serious: Yes (Other)
  Sender: FDA-Public Use
  Company Number: US-ROCHE-1572985

PATIENT

DRUGS (1)
  1. BEVACIZUMAB [Suspect]
     Active Substance: BEVACIZUMAB
     Indication: RENAL CELL CARCINOMA
     Route: 065

REACTIONS (7)
  - Tic [Unknown]
  - Proteinuria [Unknown]
  - Contusion [Unknown]
  - Vision blurred [Unknown]
  - Haemorrhage urinary tract [Unknown]
  - Epistaxis [Unknown]
  - Device related infection [Unknown]
